FAERS Safety Report 6215593-1 (Version None)
Quarter: 2009Q2

REPORT INFORMATION
  Report Type: 
  Country: None (occurrence: None)
  Receive Date: 20090603
  Receipt Date: 20090603
  Transmission Date: 20091009
  Serious: Yes (Other)
  Sender: FDA-Public Use
  Company Number: None

PATIENT
  Age: 51 Year
  Sex: Male
  Weight: 122.4712 kg

DRUGS (1)
  1. CHANTIX [Suspect]
     Indication: SMOKING CESSATION THERAPY

REACTIONS (6)
  - ASTHENIA [None]
  - BALANCE DISORDER [None]
  - FALL [None]
  - HEADACHE [None]
  - PERIPHERAL COLDNESS [None]
  - TREMOR [None]
